FAERS Safety Report 6735586-5 (Version None)
Quarter: 2010Q2

REPORT INFORMATION
  Report Type: 
  Country: None (occurrence: None)
  Receive Date: 20100521
  Receipt Date: 20100513
  Transmission Date: 20101027
  Serious: Yes (Other)
  Sender: FDA-Public Use
  Company Number: US-BAYER-201015456BCC

PATIENT
  Age: 13 Year
  Sex: Female
  Weight: 36 kg

DRUGS (1)
  1. MIDOL [Suspect]
     Indication: DYSMENORRHOEA
     Dosage: TOTAL DAILY DOSE: 2 DF  UNIT DOSE: 1 DF
     Route: 048
     Dates: start: 20100511

REACTIONS (7)
  - DEHYDRATION [None]
  - DYSMENORRHOEA [None]
  - DYSPNOEA [None]
  - HYPOPHAGIA [None]
  - RASH GENERALISED [None]
  - SWELLING FACE [None]
  - VOMITING [None]
